FAERS Safety Report 7316085-9 (Version None)
Quarter: 2011Q1

REPORT INFORMATION
  Report Type: 
  Country: None (occurrence: None)
  Receive Date: 20110225
  Receipt Date: 20110215
  Transmission Date: 20110831
  Serious: Yes (Hospitalization, Other)
  Sender: FDA-Public Use
  Company Number: US-ELI_LILLY_AND_COMPANY-US201102004769

PATIENT
  Sex: Female

DRUGS (16)
  1. LIDOCAINE [Concomitant]
     Dosage: UNK, UNKNOWN
     Route: 065
  2. LEFLUNOMIDE [Concomitant]
     Dosage: UNK, UNKNOWN
     Route: 065
  3. VYTORIN [Concomitant]
     Dosage: UNK, UNKNOWN
     Route: 065
  4. ACIPHEX [Concomitant]
     Dosage: UNK, UNKNOWN
     Route: 065
  5. FORTEO [Suspect]
     Indication: OSTEOPOROSIS
     Dosage: 20 UG, DAILY (1/D)
     Route: 065
     Dates: start: 20101101
  6. GABAPENTIN [Concomitant]
     Dosage: UNK, UNKNOWN
     Route: 065
  7. SYNTHROID [Concomitant]
     Dosage: UNK, UNKNOWN
     Route: 065
  8. MEDROL [Concomitant]
     Dosage: UNK, UNKNOWN
     Route: 065
  9. RITUXAN [Concomitant]
     Dosage: UNK, UNKNOWN
     Route: 065
  10. KEFLEX [Concomitant]
     Dosage: UNK, UNKNOWN
     Route: 065
  11. LISINOPRIL [Concomitant]
     Dosage: UNK, UNKNOWN
     Route: 065
  12. ZOCOR [Concomitant]
     Dosage: UNK, UNKNOWN
     Route: 065
  13. METOCLOPRAMIDE HCL [Concomitant]
     Dosage: UNK, UNKNOWN
     Route: 065
  14. VICODIN [Concomitant]
     Dosage: UNK, UNKNOWN
     Route: 065
  15. ASCORBIC ACID [Concomitant]
     Dosage: UNK, UNKNOWN
     Route: 065
  16. FLAXSEED OIL [Concomitant]
     Dosage: UNK, UNKNOWN
     Route: 065

REACTIONS (6)
  - DIARRHOEA [None]
  - CEREBROVASCULAR ACCIDENT [None]
  - NAUSEA [None]
  - SENSORY LOSS [None]
  - DEHYDRATION [None]
  - VOMITING [None]
